FAERS Safety Report 9230883 (Version 1)
Quarter: 2013Q2

REPORT INFORMATION
  Report Type: Spontaneous
  Country: JP (occurrence: JP)
  Receive Date: 20130415
  Receipt Date: 20130415
  Transmission Date: 20140414
  Serious: Yes (Other)
  Sender: FDA-Public Use
  Company Number: JP-ELI_LILLY_AND_COMPANY-JP201212006289

PATIENT
  Age: 61 Year
  Sex: Male
  Weight: 63.7 kg

DRUGS (10)
  1. GEMZAR [Suspect]
     Indication: GALLBLADDER CANCER
     Dosage: 1600 MG, OTHER
     Route: 042
     Dates: start: 20121019, end: 20121026
  2. GEMZAR [Suspect]
     Dosage: 1200 MG, OTHER
     Route: 042
     Dates: start: 20121116, end: 20121116
  3. GEMZAR [Suspect]
     Dosage: 600 MG, OTHER
     Route: 042
     Dates: start: 20121210, end: 20121210
  4. BRIPLATIN [Concomitant]
     Indication: GALLBLADDER CANCER
     Dosage: 40 MG, UNK
     Route: 042
     Dates: start: 20121019, end: 20121210
  5. XARELTO [Concomitant]
     Dosage: 15 MG, QD
     Route: 048
     Dates: start: 20121107, end: 20130313
  6. GASMOTIN [Concomitant]
     Dosage: 5 MG, TID
     Route: 048
     Dates: start: 20121002, end: 20130313
  7. DEPAS [Concomitant]
     Dosage: 1 MG, TID
     Route: 048
     Dates: start: 20121020, end: 20130313
  8. NAIXAN [Concomitant]
     Dosage: 100 MG, QD
     Route: 048
     Dates: start: 20121026, end: 20130313
  9. PARIET [Concomitant]
     Dosage: 10 MG, QD
     Route: 048
     Dates: start: 20121031, end: 20130313
  10. FORSENID [Concomitant]
     Dosage: 24 MG, QD
     Route: 048
     Dates: start: 20121002, end: 20130313

REACTIONS (2)
  - Cerebral haemorrhage [Unknown]
  - Platelet count decreased [Not Recovered/Not Resolved]
